FAERS Safety Report 9884435 (Version 2)
Quarter: 2014Q2

REPORT INFORMATION
  Report Type: Report from Study
  Country: US (occurrence: US)
  Receive Date: 20140210
  Receipt Date: 20140521
  Transmission Date: 20141212
  Serious: Yes (Other)
  Sender: FDA-Public Use
  Company Number: US-ASTELLAS-2014US001186

PATIENT
  Sex: Female

DRUGS (2)
  1. ERLOTINIB [Suspect]
     Indication: LUNG NEOPLASM MALIGNANT
     Route: 065
     Dates: start: 201312
  2. ERLOTINIB [Suspect]
     Route: 065
     Dates: start: 20140102, end: 20140508

REACTIONS (7)
  - Eye disorder [Unknown]
  - Malignant neoplasm progression [Unknown]
  - Positron emission tomogram abnormal [Unknown]
  - Alopecia [Unknown]
  - Madarosis [Unknown]
  - Hair growth abnormal [Unknown]
  - Hair growth abnormal [Unknown]
